FAERS Safety Report 5123768-8 (Version None)
Quarter: 2006Q4

REPORT INFORMATION
  Report Type: 
  Country: None (occurrence: None)
  Receive Date: 20061010
  Receipt Date: 20060929
  Transmission Date: 20070319
  Serious: Yes (Hospitalization)
  Sender: FDA-Public Use
  Company Number: FR-ROCHE-465263

PATIENT
  Age: 1 Day
  Sex: Female
  Weight: 2.6 kg

DRUGS (1)
  1. VALIUM [Suspect]
     Indication: DRUG USE FOR UNKNOWN INDICATION
     Route: 065
     Dates: start: 20060530, end: 20060615

REACTIONS (7)
  - DRUG EXPOSURE DURING PREGNANCY [None]
  - FEEDING DISORDER NEONATAL [None]
  - HYPOTONIA [None]
  - HYPOTONIA NEONATAL [None]
  - MALAISE [None]
  - SOMNOLENCE [None]
  - SOMNOLENCE NEONATAL [None]
